FAERS Safety Report 18527311 (Version 1)
Quarter: 2020Q4

REPORT INFORMATION
  Report Type: Spontaneous
  Country: US (occurrence: US)
  Receive Date: 20201120
  Receipt Date: 20201120
  Transmission Date: 20210114
  Serious: Yes (Disabling)
  Sender: FDA-Public Use
  Company Number: None

PATIENT
  Age: 29 Year
  Sex: Female
  Weight: 94.5 kg

DRUGS (7)
  1. LORATADINE. [Concomitant]
     Active Substance: LORATADINE
  2. CVS CALCIUM + D PLUS MINERALS [Concomitant]
  3. ADDERALL [Concomitant]
     Active Substance: AMPHETAMINE ASPARTATE\AMPHETAMINE SULFATE\DEXTROAMPHETAMINE SACCHARATE\DEXTROAMPHETAMINE SULFATE
  4. VITAFUSION WOMEN^S MULTIVITAMIN [Concomitant]
  5. NEXPLANON [Suspect]
     Active Substance: ETONOGESTREL
     Route: 058
  6. TOPIRAMATE. [Concomitant]
     Active Substance: TOPIRAMATE
  7. FLONASE [Concomitant]
     Active Substance: FLUTICASONE PROPIONATE

REACTIONS (6)
  - Vaginal discharge [None]
  - Acne [None]
  - Contraceptive implant [None]
  - Stress [None]
  - Coital bleeding [None]
  - Vulvovaginal pruritus [None]

NARRATIVE: CASE EVENT DATE: 20200822
